FAERS Safety Report 5133633-8 (Version None)
Quarter: 2006Q4

REPORT INFORMATION
  Report Type: 
  Country: None (occurrence: None)
  Receive Date: 20061018
  Receipt Date: 20061003
  Transmission Date: 20070319
  Serious: Yes (Life-Threatening, Hospitalization)
  Sender: FDA-Public Use
  Company Number: 2006EU002785

PATIENT
  Sex: Male

DRUGS (2)
  1. PROTOPIC [Suspect]
     Indication: DERMATITIS ATOPIC
     Dosage: 0.03%, UID/QD, TOPICAL
     Route: 061
     Dates: start: 20020901, end: 20060501
  2. PROSCAR [Concomitant]

REACTIONS (1)
  - B-CELL LYMPHOMA [None]
